FAERS Safety Report 4608917-X (Version None)
Quarter: 2005Q1

REPORT INFORMATION
  Report Type: 
  Country: None (occurrence: None)
  Receive Date: 20050309
  Receipt Date: 20050224
  Transmission Date: 20050727
  Serious: Yes (Death, Hospitalization)
  Sender: FDA-Public Use
  Company Number: 2005034193

PATIENT
  Age: 64 Year
  Sex: Male
  Weight: 77 kg

DRUGS (1)
  1. AMLODIPINE [Suspect]
     Indication: CARDIAC DISORDER
     Dosage: 5 MG (5 MG , 1 IN 1 D), ORAL
     Route: 048
     Dates: end: 20040801

REACTIONS (3)
  - ABDOMINAL ADHESIONS [None]
  - INTESTINAL OBSTRUCTION [None]
  - PANCREATIC CARCINOMA [None]
